FAERS Safety Report 8524142-4 (Version None)
Quarter: 2012Q3

REPORT INFORMATION
  Report Type: 
  Country: None (occurrence: None)
  Receive Date: 20120720
  Receipt Date: 20120717
  Transmission Date: 20120928
  Serious: No
  Sender: FDA-Public Use
  Company Number: US-BAYER-2012-072233

PATIENT
  Age: 41 Year
  Sex: Male
  Weight: 83.9 kg

DRUGS (5)
  1. CIALIS [Concomitant]
     Indication: PRODUCT USED FOR UNKNOWN INDICATION
  2. LEVITRA [Suspect]
     Indication: PRODUCT USED FOR UNKNOWN INDICATION
  3. ZOLOFT [Concomitant]
     Indication: AGITATION
  4. VIAGRA [Concomitant]
     Indication: LIBIDO DECREASED
     Dosage: UNK UNK, PRN
     Route: 048
     Dates: start: 20100101
  5. SEROQUEL [Concomitant]
     Indication: SLEEP DISORDER

REACTIONS (1)
  - DRUG INEFFECTIVE [None]
